APPROVED DRUG PRODUCT: VARDENAFIL HYDROCHLORIDE
Active Ingredient: VARDENAFIL HYDROCHLORIDE
Strength: EQ 20MG BASE
Dosage Form/Route: TABLET;ORAL
Application: A091347 | Product #004 | TE Code: AB
Applicant: TEVA PHARMACEUTICALS USA
Approved: May 3, 2012 | RLD: No | RS: No | Type: RX